FAERS Safety Report 4606558-1 (Version None)
Quarter: 2005Q2

REPORT INFORMATION
  Report Type: 
  Country: None (occurrence: None)
  Receive Date: 20050223
  Receipt Date: 20040805
  Transmission Date: 20051028
  Serious: Yes (Life-Threatening, Hospitalization, Disabling, Other)
  Sender: FDA-Public Use
  Company Number: WAES 0408USA00494

PATIENT
  Age: 65 Year
  Sex: Female

DRUGS (2)
  1. ZOCOR [Suspect]
     Indication: LIPIDS INCREASED
     Dosage: PO
     Route: 048
     Dates: end: 20040803
  2. ZETIA [Suspect]
     Indication: LIPIDS INCREASED
     Dosage: 10 MG/ PO
     Route: 048
     Dates: end: 20040101

REACTIONS (2)
  - RENAL FAILURE ACUTE [None]
  - RHABDOMYOLYSIS [None]
